FAERS Safety Report 7094108-2 (Version None)
Quarter: 2010Q4

REPORT INFORMATION
  Report Type: 
  Country: None (occurrence: None)
  Receive Date: 20101102
  Receipt Date: 20101028
  Transmission Date: 20110411
  Serious: Yes (Death, Other)
  Sender: FDA-Public Use
  Company Number: 2010JP006060

PATIENT
  Age: 50 Year
  Sex: Female

DRUGS (6)
  1. PROGRAF [Suspect]
     Indication: LIVER TRANSPLANT
  2. RITUXIMAB (RITUXIMAB) [Concomitant]
  3. METHLYPREDNISONE (METHYLPREDNISONE) [Concomitant]
  4. ALPROSTADIL [Concomitant]
  5. MYCOPHENOLATE MOFETIL [Concomitant]
  6. GANCICLOVIR SODIUM [Concomitant]

REACTIONS (16)
  - ABSCESS [None]
  - ACUTE RESPIRATORY FAILURE [None]
  - BACILLUS TEST POSITIVE [None]
  - BLOOD PRESSURE DECREASED [None]
  - CONTINUOUS HAEMODIAFILTRATION [None]
  - CYTOMEGALOVIRUS TEST POSITIVE [None]
  - FUNGAL CYSTITIS [None]
  - GANGRENE [None]
  - NO THERAPEUTIC RESPONSE [None]
  - OESOPHAGEAL DISORDER [None]
  - ORGANISING PNEUMONIA [None]
  - PNEUMONIA [None]
  - POST PROCEDURAL COMPLICATION [None]
  - PSEUDOMONAL SEPSIS [None]
  - PULMONARY HAEMORRHAGE [None]
  - PULMONARY OEDEMA [None]
